FAERS Safety Report 7521775-9 (Version None)
Quarter: 2011Q2

REPORT INFORMATION
  Report Type: 
  Country: None (occurrence: None)
  Receive Date: 20110603
  Receipt Date: 20110523
  Transmission Date: 20111010
  Serious: Yes (Other)
  Sender: FDA-Public Use
  Company Number: PHHY2011SI44266

PATIENT
  Age: 57 Year
  Sex: Female

DRUGS (1)
  1. DARIFENACIN HYDROBROMIDE [Suspect]
     Indication: HYPERTONIC BLADDER
     Dosage: 7.5 MG, QD
     Route: 048
     Dates: start: 20110201

REACTIONS (1)
  - EPILEPSY [None]
